FAERS Safety Report 25200020 (Version 1)
Quarter: 2025Q2

REPORT INFORMATION
  Report Type: Spontaneous
  Country: US (occurrence: US)
  Receive Date: 20250415
  Receipt Date: 20250415
  Transmission Date: 20250717
  Serious: No
  Sender: PIERREL
  Company Number: US-PIERREL S.P.A.-2025PIR00008

PATIENT
  Sex: Female

DRUGS (1)
  1. ORABLOC [Suspect]
     Active Substance: ARTICAINE HYDROCHLORIDE\EPINEPHRINE BITARTRATE
     Indication: Dental care
     Route: 004

REACTIONS (1)
  - Tremor [Recovered/Resolved]
